FAERS Safety Report 19942696 (Version 13)
Quarter: 2025Q4

REPORT INFORMATION
  Report Type: Report from Study
  Country: MX (occurrence: MX)
  Receive Date: 20211012
  Receipt Date: 20251225
  Transmission Date: 20260117
  Serious: Yes (Life-Threatening, Hospitalization, Other)
  Sender: NOVARTIS
  Company Number: MX-NOVARTISPH-NVSC2021MX044883

PATIENT
  Age: 53 Year
  Sex: Female
  Weight: 73 kg

DRUGS (12)
  1. TASIGNA [Suspect]
     Active Substance: NILOTINIB
     Indication: Chronic myeloid leukaemia
     Dosage: 2 DOSAGE FORM, BID (800MG TOTAL, DAILY IN THE MORNING AND AT NIGHT)
     Route: 048
     Dates: start: 2010
  2. TASIGNA [Suspect]
     Active Substance: NILOTINIB
     Dosage: 200 MG 2 DF, BID (2 CAPSULES IN THE MORNING AND 2 CAPSULES AT NIGHT)
     Route: 065
     Dates: start: 2010
  3. TASIGNA [Suspect]
     Active Substance: NILOTINIB
     Dosage: 400 MG, BID (IN THE MORNING AND AT NIGHT)
     Route: 048
     Dates: start: 2011
  4. TASIGNA [Suspect]
     Active Substance: NILOTINIB
     Dosage: 200 MG BID (IN THE MORNING AND AT NIGHT)
     Route: 048
     Dates: start: 2011
  5. TASIGNA [Suspect]
     Active Substance: NILOTINIB
     Dosage: 800 MG
     Route: 048
     Dates: start: 2011
  6. TASIGNA [Suspect]
     Active Substance: NILOTINIB
     Dosage: 800 MG, QD
     Route: 048
  7. TASIGNA [Suspect]
     Active Substance: NILOTINIB
     Dosage: UNK
     Route: 048
  8. TASIGNA [Suspect]
     Active Substance: NILOTINIB
     Dosage: 4 DOSAGE FORM (2 CAPSULES IN THE MORNING AND 2 CAPSULES AT NIGHT), QD
     Route: 048
  9. TASIGNA [Suspect]
     Active Substance: NILOTINIB
     Dosage: 2 DOSAGE FORM, BID (IN THE MORNING AND AT NIGHT)
     Route: 048
     Dates: start: 2019
  10. DAPAGLIFLOZIN [Suspect]
     Active Substance: DAPAGLIFLOZIN
     Indication: Diabetes mellitus
     Dosage: 1 DOSAGE FORM, QD
     Route: 048
  11. DAPAGLIFLOZIN [Suspect]
     Active Substance: DAPAGLIFLOZIN
     Indication: Blood pressure abnormal
  12. EVOLOCUMAB [Concomitant]
     Active Substance: EVOLOCUMAB
     Indication: Cardiac disorder
     Dosage: 1 DOSAGE FORM (1 APPLICATIONS X 140 MG/ML, EVERY 15 DAYS STARTED SEVERAL YEARS AGO)
     Route: 058

REACTIONS (30)
  - Platelet count decreased [Not Recovered/Not Resolved]
  - Arterial occlusive disease [Recovered/Resolved]
  - Post procedural infection [Recovered/Resolved]
  - Fatigue [Recovered/Resolved]
  - Silent myocardial infarction [Recovered/Resolved]
  - Dyspnoea [Unknown]
  - Fatigue [Recovered/Resolved]
  - Diabetes mellitus [Recovering/Resolving]
  - Eating disorder [Unknown]
  - COVID-19 [Recovered/Resolved]
  - Influenza [Recovered/Resolved]
  - Cough [Recovered/Resolved]
  - Hypersensitivity [Not Recovered/Not Resolved]
  - Anxiety [Not Recovered/Not Resolved]
  - Malaise [Unknown]
  - Blood pressure increased [Recovered/Resolved]
  - Venous occlusion [Recovered/Resolved]
  - Vein disorder [Recovered/Resolved]
  - COVID-19 [Recovered/Resolved]
  - Secretion discharge [Recovered/Resolved]
  - Productive cough [Recovered/Resolved]
  - Illness [Unknown]
  - Rhinorrhoea [Recovered/Resolved]
  - Conjunctivitis [Recovered/Resolved]
  - Influenza [Recovering/Resolving]
  - Myalgia [Unknown]
  - Headache [Unknown]
  - Cough [Unknown]
  - Fatigue [Unknown]
  - Somnolence [Unknown]

NARRATIVE: CASE EVENT DATE: 20190804
